FAERS Safety Report 8545690-7 (Version None)
Quarter: 2012Q3

REPORT INFORMATION
  Report Type: 
  Country: None (occurrence: None)
  Receive Date: 20120727
  Receipt Date: 20120725
  Transmission Date: 20120928
  Serious: Yes (Death)
  Sender: FDA-Public Use
  Company Number: US-CELGENEUS-163-21880-12072790

PATIENT
  Sex: Female
  Weight: 47.125 kg

DRUGS (12)
  1. LACTINEX [Concomitant]
     Route: 065
  2. REVLIMID [Suspect]
     Indication: MULTIPLE MYELOMA
     Dosage: 25 MILLIGRAM
     Route: 048
     Dates: start: 20110606, end: 20110729
  3. LASIX [Concomitant]
     Route: 065
  4. POTASSIUM CHLORIDE [Concomitant]
     Route: 065
  5. LOVENOX [Concomitant]
     Route: 065
  6. ENOXAPARIN [Concomitant]
     Dosage: 40 MILLIGRAM
     Route: 065
  7. INSULIN [Concomitant]
     Route: 065
  8. PRAVASTATIN [Concomitant]
     Route: 065
  9. PROTONIX [Concomitant]
     Route: 065
  10. AMLODIPINE [Concomitant]
     Route: 065
  11. COREG [Concomitant]
     Route: 065
  12. ZOFRAN [Concomitant]
     Route: 065

REACTIONS (1)
  - DEATH [None]
